FAERS Safety Report 8938534 (Version 3)
Quarter: 2013Q3

REPORT INFORMATION
  Report Type: Report from Study
  Country: NL (occurrence: NL)
  Receive Date: 20121130
  Receipt Date: 20130912
  Transmission Date: 20140515
  Serious: Yes (Death, Hospitalization)
  Sender: FDA-Public Use
  Company Number: NL-ROCHE-1161653

PATIENT
  Sex: 0

DRUGS (6)
  1. RITUXIMAB [Suspect]
     Indication: DIFFUSE LARGE B-CELL LYMPHOMA
     Dosage: DAY 1, EVERY 28 DAYS FOR 4 CYCLES
     Route: 042
  2. ETOPOSIDE [Suspect]
     Indication: DIFFUSE LARGE B-CELL LYMPHOMA
     Dosage: DAY 1-5, EVERY 28 DAYS FOR 4 CYCLES
     Route: 048
  3. LOMUSTINE [Suspect]
     Indication: DIFFUSE LARGE B-CELL LYMPHOMA
     Dosage: DAY 1, EVERY 28 DAYS FOR 4 CYCLES
     Route: 048
  4. YTTRIUM 90 IBRITUMOMAB TIUXETAN [Suspect]
     Indication: DIFFUSE LARGE B-CELL LYMPHOMA
     Dosage: 15 MBQ/KG
     Route: 065
  5. PREDNISONE [Suspect]
     Indication: DIFFUSE LARGE B-CELL LYMPHOMA
     Dosage: DAY 1-DAY 5 Q 28 DAYS FOR 4 CYCLES
     Route: 048
  6. CHLORAMBUCIL [Suspect]
     Indication: DIFFUSE LARGE B-CELL LYMPHOMA
     Dosage: DAY 1-DAY 5 Q 28 DAYS FOR 4 CYCLES
     Route: 048

REACTIONS (6)
  - Sepsis [Fatal]
  - Pneumonia [Fatal]
  - Haematotoxicity [Unknown]
  - Infection [Unknown]
  - Malaise [Unknown]
  - Gastrointestinal toxicity [Unknown]
